FAERS Safety Report 19395652 (Version 1)
Quarter: 2021Q2

REPORT INFORMATION
  Report Type: Spontaneous
  Country: GB (occurrence: GB)
  Receive Date: 20210609
  Receipt Date: 20210609
  Transmission Date: 20210717
  Serious: Yes (Disabling)
  Sender: FDA-Public Use
  Company Number: GB-SA-2021SA182758

PATIENT
  Age: 33 Year
  Sex: Female

DRUGS (1)
  1. CLEXANE [Suspect]
     Active Substance: ENOXAPARIN SODIUM
     Indication: THROMBOSIS PROPHYLAXIS
     Dosage: UNK UNK, QD

REACTIONS (8)
  - Muscular weakness [Unknown]
  - Dysstasia [Unknown]
  - Headache [Unknown]
  - Chest discomfort [Unknown]
  - Dizziness [Unknown]
  - Throat tightness [Unknown]
  - Heart rate increased [Unknown]
  - Feeling abnormal [Unknown]

NARRATIVE: CASE EVENT DATE: 20210527
